FAERS Safety Report 10159608 (Version 1)
Quarter: 2014Q2

REPORT INFORMATION
  Report Type: Spontaneous
  Country: CH (occurrence: CH)
  Receive Date: 20140508
  Receipt Date: 20140508
  Transmission Date: 20141212
  Serious: Yes (Hospitalization)
  Sender: FDA-Public Use
  Company Number: CH-BAYER-2014-065082

PATIENT
  Age: 62 Year
  Sex: Female

DRUGS (6)
  1. ASPIRIN CARDIO [Suspect]
     Dosage: 100 MG, QD
     Route: 048
  2. BACTRIM [Suspect]
     Indication: STERNITIS
     Dosage: UNK
     Route: 048
     Dates: start: 20140313, end: 20140322
  3. RIFAMPICINE [Suspect]
     Indication: STERNITIS
     Dosage: 450 MG, BID
     Route: 048
     Dates: start: 20140313, end: 20140322
  4. PANTOPRAZOLE [Suspect]
     Dosage: 20 MG, QD
     Route: 048
     Dates: start: 20140313
  5. SORTIS [Suspect]
     Dosage: 40 MG, QD
     Route: 048
     Dates: start: 20140121
  6. VANCOMYCIN [Concomitant]
     Indication: STERNITIS
     Dosage: UNK
     Route: 042
     Dates: start: 20140213, end: 20140313

REACTIONS (2)
  - Purpura [Recovered/Resolved]
  - Cutaneous vasculitis [Recovered/Resolved]
